FAERS Safety Report 6509087-3 (Version None)
Quarter: 2009Q4

REPORT INFORMATION
  Report Type: 
  Country: None (occurrence: None)
  Receive Date: 20091218
  Receipt Date: 20091218
  Transmission Date: 20100525
  Serious: No
  Sender: FDA-Public Use
  Company Number: None

PATIENT
  Sex: Male
  Weight: 88.4514 kg

DRUGS (2)
  1. PROZAC [Suspect]
     Indication: ANXIETY
     Dosage: 20MG  DAY PO
     Route: 048
     Dates: start: 19970601, end: 20090201
  2. PROZAC [Suspect]
     Indication: DEPRESSION
     Dosage: 20MG  DAY PO
     Route: 048
     Dates: start: 19970601, end: 20090201

REACTIONS (5)
  - ANORGASMIA [None]
  - BLOOD TESTOSTERONE DECREASED [None]
  - ERECTILE DYSFUNCTION [None]
  - LOSS OF LIBIDO [None]
  - PARAESTHESIA OF GENITAL MALE [None]
